FAERS Safety Report 6566580-5 (Version None)
Quarter: 2010Q1

REPORT INFORMATION
  Report Type: 
  Country: None (occurrence: None)
  Receive Date: 20100129
  Receipt Date: 20090602
  Transmission Date: 20100710
  Serious: Yes (Hospitalization)
  Sender: FDA-Public Use
  Company Number: 2009BH005740

PATIENT
  Age: 80 Year
  Sex: Male

DRUGS (25)
  1. DIANEAL [Suspect]
     Indication: PERITONEAL DIALYSIS
     Dosage: 8 L; EVERY DAY; IP
     Route: 033
     Dates: start: 20090323
  2. DIANEAL [Suspect]
  3. DIANEAL [Suspect]
  4. HEPARIN [Concomitant]
  5. ALLOPURINOL [Concomitant]
  6. ASPIRIN [Concomitant]
  7. BENADRYL [Concomitant]
  8. CALCITRIOL [Concomitant]
  9. CO Q10 [Concomitant]
  10. COREG [Concomitant]
  11. LANTUS [Concomitant]
  12. LIPITOR [Concomitant]
  13. NEPHROCAPS [Concomitant]
  14. NEURONTIN [Concomitant]
  15. BENICAR [Concomitant]
  16. PREVACID [Concomitant]
  17. RENAGEL [Concomitant]
  18. TUMS [Concomitant]
  19. TYLENOL-500 [Concomitant]
  20. VITAMIN C [Concomitant]
  21. XALATAN [Concomitant]
  22. URGOCALCIFEROL [Concomitant]
  23. GLUCOSAMINE/CHONDROITIN [Concomitant]
  24. GLYCOLAX [Concomitant]
  25. HUMALOG [Concomitant]

REACTIONS (1)
  - PERITONITIS [None]
